FAERS Safety Report 7322293-3 (Version None)
Quarter: 2011Q1

REPORT INFORMATION
  Report Type: 
  Country: None (occurrence: None)
  Receive Date: 20110301
  Receipt Date: 20110214
  Transmission Date: 20110831
  Serious: No
  Sender: FDA-Public Use
  Company Number: US-BIOGENIDEC-2011BI006353

PATIENT
  Age: 50 Year
  Sex: Female

DRUGS (2)
  1. TYSABRI [Suspect]
     Indication: MULTIPLE SCLEROSIS
     Route: 042
     Dates: start: 20090320
  2. OMEGA OIL PILLS [Concomitant]

REACTIONS (3)
  - ANAEMIA [None]
  - BLOOD TRIGLYCERIDES INCREASED [None]
  - HERPES ZOSTER [None]
